FAERS Safety Report 7650707-8 (Version None)
Quarter: 2011Q3

REPORT INFORMATION
  Report Type: 
  Country: None (occurrence: None)
  Receive Date: 20110802
  Receipt Date: 20110801
  Transmission Date: 20111222
  Serious: Yes (Other)
  Sender: FDA-Public Use
  Company Number: US-B.I. PHARMACEUTICALS,INC./RIDGEFIELD-2011-BP-15028PF

PATIENT
  Sex: Female
  Weight: 69.39 kg

DRUGS (5)
  1. BONIVA [Concomitant]
     Indication: OSTEOPOROSIS
     Dates: start: 20110301
  2. HYDROCHLOROTHIAZIDE [Concomitant]
     Indication: BLOOD PRESSURE ABNORMAL
     Dates: start: 19980101
  3. SPIRIVA [Suspect]
     Indication: CHRONIC OBSTRUCTIVE PULMONARY DISEASE
     Dosage: 18 MCG
     Dates: start: 20101101
  4. ADVAIR DISKUS 100/50 [Suspect]
     Indication: CHRONIC OBSTRUCTIVE PULMONARY DISEASE
     Dates: start: 20101101, end: 20110501
  5. CHANTIX [Suspect]
     Indication: SMOKING CESSATION THERAPY
     Dosage: 0.5 MG
     Route: 048
     Dates: start: 20110501

REACTIONS (5)
  - DEPRESSED MOOD [None]
  - STRESS [None]
  - CATARACT [None]
  - VISION BLURRED [None]
  - ANXIETY [None]
